FAERS Safety Report 24698297 (Version 1)
Quarter: 2024Q4

REPORT INFORMATION
  Report Type: Spontaneous
  Country: CN (occurrence: CN)
  Receive Date: 20241204
  Receipt Date: 20241204
  Transmission Date: 20250115
  Serious: Yes (Other)
  Sender: PURDUE
  Company Number: CN-NAPPMUNDI-GBR-2024-0121688

PATIENT
  Age: 53 Year
  Sex: Male
  Weight: 50 kg

DRUGS (3)
  1. OXYCODONE HYDROCHLORIDE [Suspect]
     Active Substance: OXYCODONE HYDROCHLORIDE
     Indication: Cancer pain
     Dosage: 90 MILLIGRAM, Q12H
     Route: 048
     Dates: end: 202410
  2. OXYCODONE HYDROCHLORIDE [Suspect]
     Active Substance: OXYCODONE HYDROCHLORIDE
     Dosage: 90 MILLIGRAM, Q8H
     Route: 048
     Dates: start: 20241018, end: 20241019
  3. MORPHINE HYDROCHLORIDE [Suspect]
     Active Substance: MORPHINE HYDROCHLORIDE
     Indication: Cancer pain
     Dosage: 30 MILLIGRAM EACH TIME, PRN (AS NEEDED)
     Route: 048

REACTIONS (6)
  - Somnolence [Recovering/Resolving]
  - Respiratory rate decreased [Recovering/Resolving]
  - Apnoea [Recovering/Resolving]
  - Overdose [Recovering/Resolving]
  - Breakthrough pain [Recovering/Resolving]
  - Inappropriate schedule of product administration [Unknown]

NARRATIVE: CASE EVENT DATE: 20240101
